FAERS Safety Report 4773569-5 (Version None)
Quarter: 2005Q3

REPORT INFORMATION
  Report Type: 
  Country: None (occurrence: None)
  Receive Date: 20050920
  Receipt Date: 20050602
  Transmission Date: 20060218
  Serious: No
  Sender: FDA-Public Use
  Company Number: US-BRISTOL-MYERS SQUIBB COMPANY-12990990

PATIENT
  Sex: Male

DRUGS (3)
  1. BUSPAR [Suspect]
     Indication: GENERALISED ANXIETY DISORDER
     Dosage: DURATION OF THERAPY:  A FEW WEEKS
  2. TENORMIN [Concomitant]
  3. ZANTAC [Concomitant]

REACTIONS (5)
  - ANXIETY [None]
  - DIARRHOEA [None]
  - DRUG INEFFECTIVE [None]
  - HEADACHE [None]
  - INSOMNIA [None]
